FAERS Safety Report 5006471-4 (Version None)
Quarter: 2006Q2

REPORT INFORMATION
  Report Type: 
  Country: None (occurrence: None)
  Receive Date: 20060516
  Receipt Date: 20060508
  Transmission Date: 20061013
  Serious: Yes (Other)
  Sender: FDA-Public Use
  Company Number: 2006035625

PATIENT
  Age: 72 Year
  Sex: Male
  Weight: 140.6151 kg

DRUGS (8)
  1. NORVASC [Suspect]
     Indication: ANGINA PECTORIS
     Dosage: 5 MG (5 MG, DAILY INTERVAL: EVERYDAY), ORAL
     Route: 048
  2. INSULIN [Concomitant]
  3. PLAVIX [Concomitant]
  4. METOLAZONE [Concomitant]
  5. LISINOPRIL [Concomitant]
  6. METOPROLOL SUCCINATE [Concomitant]
  7. VICODIN [Concomitant]
  8. CYMBALTA [Concomitant]

REACTIONS (1)
  - CATARACT [None]
